FAERS Safety Report 17745328 (Version 2)
Quarter: 2020Q2

REPORT INFORMATION
  Report Type: Spontaneous
  Country: CH (occurrence: CH)
  Receive Date: 20200505
  Receipt Date: 20200508
  Transmission Date: 20200714
  Serious: No
  Sender: FDA-Public Use
  Company Number: CH-PFIZER INC-2020175487

PATIENT
  Age: 51 Year
  Sex: Male

DRUGS (31)
  1. PIPERACILLIN/TAZOBACTAM [Suspect]
     Active Substance: PIPERACILLIN SODIUM\TAZOBACTAM SODIUM
     Dosage: 4.5 G
     Route: 041
     Dates: start: 20200409, end: 20200412
  2. TEMESTA [LORAZEPAM] [Concomitant]
     Active Substance: LORAZEPAM
     Dosage: UNK
     Dates: start: 20200408, end: 20200408
  3. PHOSPHATE [POTASSIUM BICARBONATE;SODIUM PHOSPHATE MONOBASIC] [Concomitant]
     Dosage: UNK
     Dates: start: 20200413
  4. ZITHROMAX [Suspect]
     Active Substance: AZITHROMYCIN DIHYDRATE
     Dosage: 500 MG
     Route: 048
     Dates: start: 20200405, end: 20200409
  5. PLAQUENIL [Suspect]
     Active Substance: HYDROXYCHLOROQUINE SULFATE
     Dosage: 800 MG (IN TOTAL)
     Route: 048
     Dates: start: 20200404, end: 20200404
  6. PERFALGAN [Suspect]
     Active Substance: ACETAMINOPHEN
     Dosage: 1 MG (MAX 3X/DAY ; AS NECESSARY)
     Route: 042
     Dates: start: 20200405, end: 20200412
  7. POTASSIUM [Concomitant]
     Active Substance: POTASSIUM
     Dosage: UNK
     Dates: start: 20200410, end: 20200411
  8. HEPARIN [Concomitant]
     Active Substance: HEPARIN SODIUM
     Dosage: UNK
     Dates: start: 20200414
  9. VENTOLINE [SALBUTAMOL] [Concomitant]
     Active Substance: ALBUTEROL SULFATE
     Dosage: UNK (AS NECESSARY)
     Dates: start: 20200405, end: 20200412
  10. AUGMENTIN [Suspect]
     Active Substance: AMOXICILLIN\CLAVULANATE POTASSIUM
     Dosage: 1.2 G
     Route: 041
     Dates: start: 20200404, end: 20200409
  11. CLEXANE [Suspect]
     Active Substance: ENOXAPARIN SODIUM
     Dosage: UNK
     Route: 058
     Dates: start: 20200413, end: 20200414
  12. FENTANYL. [Concomitant]
     Active Substance: FENTANYL
     Dosage: UNK
     Dates: start: 20200411
  13. SOLU-MEDROL [Concomitant]
     Active Substance: METHYLPREDNISOLONE SODIUM SUCCINATE
     Dosage: UNK
     Dates: start: 20200414
  14. CLEXANE [Suspect]
     Active Substance: ENOXAPARIN SODIUM
     Dosage: 40 MG
     Route: 058
     Dates: start: 20200414
  15. TAVANIC [Concomitant]
     Active Substance: LEVOFLOXACIN
     Dosage: UNK
     Dates: start: 20200412, end: 20200413
  16. BENERVA [Concomitant]
     Active Substance: THIAMINE HYDROCHLORIDE
     Dosage: UNK
     Dates: start: 20200411, end: 20200411
  17. RELISTOR [Concomitant]
     Active Substance: METHYLNALTREXONE BROMIDE
     Dosage: UNK
     Dates: start: 20200414
  18. NOVASOURCE GI CONTROL [Concomitant]
     Dosage: UNK
     Dates: start: 20200411
  19. NOVORAPID [Concomitant]
     Active Substance: INSULIN ASPART
     Dosage: UNK
     Dates: start: 20200414
  20. KALETRA [Suspect]
     Active Substance: LOPINAVIR\RITONAVIR
     Dosage: 400 MG
     Route: 048
     Dates: start: 20200405, end: 20200405
  21. CLEXANE [Suspect]
     Active Substance: ENOXAPARIN SODIUM
     Dosage: 40 MG
     Route: 058
     Dates: start: 20200407, end: 20200412
  22. IPRAMOL [Concomitant]
     Active Substance: ALBUTEROL SULFATE\IPRATROPIUM BROMIDE
     Dosage: UNK
     Dates: start: 20200405, end: 20200405
  23. ATRACURIUM [Concomitant]
     Active Substance: ATRACURIUM
     Dosage: UNK
     Dates: start: 20200411
  24. DORMICUM [MIDAZOLAM MALEATE] [Concomitant]
     Active Substance: MIDAZOLAM MALEATE
     Dosage: UNK
     Dates: start: 20200411
  25. COLISTIN [Concomitant]
     Active Substance: COLISTIN
     Dosage: UNK
     Dates: start: 20200411
  26. KALETRA [Suspect]
     Active Substance: LOPINAVIR\RITONAVIR
     Dosage: 400 MG
     Route: 048
     Dates: start: 20200407, end: 20200410
  27. TORASEMIDE [Concomitant]
     Active Substance: TORSEMIDE
     Dosage: UNK
     Dates: start: 20200410, end: 20200411
  28. TOBRAMYCIN. [Concomitant]
     Active Substance: TOBRAMYCIN
     Dosage: UNK
     Dates: start: 20200411
  29. AMPHOTERICIN B. [Concomitant]
     Active Substance: AMPHOTERICIN B
     Dosage: UNK
     Dates: start: 20200411
  30. CLEXANE [Suspect]
     Active Substance: ENOXAPARIN SODIUM
     Dosage: 40 MG
     Route: 058
     Dates: start: 20200405, end: 20200406
  31. MOVICOL [Concomitant]
     Active Substance: POLYETHYLENE GLYCOL 3350\POTASSIUM CHLORIDE\SODIUM BICARBONATE\SODIUM CHLORIDE
     Dosage: UNK (AS NECESSARY)
     Dates: start: 20200407, end: 20200412

REACTIONS (1)
  - No adverse event [Recovering/Resolving]

NARRATIVE: CASE EVENT DATE: 20200412
